FAERS Safety Report 25726920 (Version 1)
Quarter: 2025Q3

REPORT INFORMATION
  Report Type: Spontaneous
  Country: US (occurrence: US)
  Receive Date: 20250826
  Receipt Date: 20250826
  Transmission Date: 20251020
  Serious: No
  Sender: PFIZER
  Company Number: US-PFIZER INC-202500169061

PATIENT
  Sex: Female

DRUGS (3)
  1. PAXLOVID [Interacting]
     Active Substance: NIRMATRELVIR\RITONAVIR
     Indication: COVID-19 treatment
  2. CLINDAMYCIN HYDROCHLORIDE [Interacting]
     Active Substance: CLINDAMYCIN HYDROCHLORIDE
  3. DOXYCYCLINE HYCLATE [Interacting]
     Active Substance: DOXYCYCLINE HYCLATE

REACTIONS (8)
  - Dizziness [Unknown]
  - Dizziness postural [Unknown]
  - Tremor [Unknown]
  - Nausea [Unknown]
  - Vomiting [Unknown]
  - Gait disturbance [Unknown]
  - Dysstasia [Unknown]
  - Drug interaction [Unknown]
